FAERS Safety Report 24969243 (Version 1)
Quarter: 2025Q1

REPORT INFORMATION
  Report Type: Report from Study
  Country: CA (occurrence: CA)
  Receive Date: 20250214
  Receipt Date: 20250214
  Transmission Date: 20250408
  Serious: No
  Sender: ABBVIE
  Company Number: CA-ABBVIE-6129754

PATIENT
  Age: 68 Year
  Sex: Female

DRUGS (2)
  1. RINVOQ [Suspect]
     Active Substance: UPADACITINIB
     Indication: Crohn^s disease
     Route: 048
  2. RINVOQ [Suspect]
     Active Substance: UPADACITINIB
     Indication: Crohn^s disease
     Route: 048
     Dates: start: 2024

REACTIONS (8)
  - Vitreous floaters [Unknown]
  - Abdominal pain [Unknown]
  - Tenderness [Unknown]
  - General physical health deterioration [Unknown]
  - Diarrhoea [Unknown]
  - Impaired work ability [Unknown]
  - Social problem [Unknown]
  - Arthralgia [Unknown]

NARRATIVE: CASE EVENT DATE: 20240101
